FAERS Safety Report 11871445 (Version 3)
Quarter: 2016Q1

REPORT INFORMATION
  Report Type: Spontaneous
  Country: AR (occurrence: AR)
  Receive Date: 20151228
  Receipt Date: 20160211
  Transmission Date: 20160526
  Serious: Yes (Hospitalization)
  Sender: FDA-Public Use
  Company Number: PHHY2015AR169376

PATIENT
  Age: 73 Year
  Sex: Male

DRUGS (2)
  1. ONBREZ BREEZHALER [Suspect]
     Active Substance: INDACATEROL
     Indication: CHRONIC OBSTRUCTIVE PULMONARY DISEASE
     Dosage: 1 DF, QD
     Route: 065
     Dates: start: 2010
  2. ONBREZ BREEZHALER [Suspect]
     Active Substance: INDACATEROL
     Dosage: UNK, QOD
     Route: 065

REACTIONS (4)
  - Total lung capacity decreased [Recovered/Resolved]
  - Nasopharyngitis [Recovered/Resolved]
  - Chronic obstructive pulmonary disease [Recovered/Resolved]
  - Agitation [Recovering/Resolving]

NARRATIVE: CASE EVENT DATE: 20151205
